FAERS Safety Report 9836956 (Version 1)
Quarter: 2013Q4

REPORT INFORMATION
  Report Type: Spontaneous
  Country: US (occurrence: None)
  Receive Date: 20131127
  Receipt Date: 20131127
  Transmission Date: 20140711
  Serious: No
  Sender: FDA-Public Use
  Company Number: 223137

PATIENT
  Age: 52 Year
  Sex: Female

DRUGS (2)
  1. PICATO [Suspect]
     Indication: ACTINIC KERATOSIS
     Dosage: ONCE DAILY FOR 3 DAYS, TOPICAL
     Route: 061
     Dates: start: 20130801
  2. LIQUID NITROGEN (NITROGEN, LIQUID) [Concomitant]

REACTIONS (4)
  - Application site pain [None]
  - Application site erythema [None]
  - Application site swelling [None]
  - Application site discharge [None]
